FAERS Safety Report 24555651 (Version 1)
Quarter: 2024Q4

REPORT INFORMATION
  Report Type: Spontaneous
  Country: PR (occurrence: None)
  Receive Date: 20241025
  Receipt Date: 20241025
  Transmission Date: 20250115
  Serious: Yes (Life-Threatening, Other)
  Sender: Public
  Company Number: None

PATIENT
  Age: 51 Year
  Sex: Female
  Weight: 81 kg

DRUGS (2)
  1. RITUXAN [Suspect]
     Active Substance: RITUXIMAB
     Dosage: 1000 MG/MG EVERY 14 DAYS INTRAVENOUS DRIP
     Route: 041
     Dates: start: 20241024, end: 20241024
  2. RITUXAN [Concomitant]
     Active Substance: RITUXIMAB
     Dates: start: 20241024, end: 20241024

REACTIONS (5)
  - Heart rate decreased [None]
  - Hypertension [None]
  - Ear pruritus [None]
  - Throat irritation [None]
  - Dyspnoea [None]

NARRATIVE: CASE EVENT DATE: 20241024
